FAERS Safety Report 21119401 (Version 1)
Quarter: 2022Q3

REPORT INFORMATION
  Report Type: Spontaneous
  Country: US (occurrence: None)
  Receive Date: 20220721
  Receipt Date: 20220721
  Transmission Date: 20221027
  Serious: Yes (Death)
  Sender: FDA-Public Use
  Company Number: None

PATIENT
  Age: 78 Year
  Sex: Male
  Weight: 86.64 kg

DRUGS (2)
  1. REMDESIVIR [Suspect]
     Active Substance: REMDESIVIR
     Indication: COVID-19 pneumonia
     Dosage: FREQUENCY : ONCE;?
     Route: 042
     Dates: start: 20211019, end: 20211019
  2. BARICITINIB [Suspect]
     Active Substance: BARICITINIB
     Dosage: FREQUENCY : DAILY;?
     Route: 048
     Dates: start: 20211019, end: 20211020

REACTIONS (4)
  - Septic shock [None]
  - Acute kidney injury [None]
  - Hypocalcaemia [None]
  - Disease progression [None]

NARRATIVE: CASE EVENT DATE: 20211021
